FAERS Safety Report 7283473-9 (Version None)
Quarter: 2011Q1

REPORT INFORMATION
  Report Type: 
  Country: None (occurrence: None)
  Receive Date: 20110209
  Receipt Date: 20110128
  Transmission Date: 20110831
  Serious: Yes (Other)
  Sender: FDA-Public Use
  Company Number: PHHY2010US86451

PATIENT
  Sex: Female

DRUGS (12)
  1. TYLENOL-500 [Concomitant]
     Dosage: 325 MG, DAILY
     Route: 048
  2. POTASSIUM CHLORIDE [Concomitant]
     Dosage: 10 MEQ, DAILY
     Route: 048
  3. LASIX [Concomitant]
     Dosage: 20 MG, BID
     Route: 048
  4. TASIGNA [Suspect]
     Indication: CHRONIC MYELOID LEUKAEMIA
     Dosage: 400 MG, DAILY
     Route: 048
     Dates: start: 20101119
  5. CHLORPHENIRAMINE MALEATE [Concomitant]
     Indication: SEASONAL ALLERGY
     Dosage: 4 MG, UNK
  6. LEVOXYL [Concomitant]
     Dosage: 200 MG, DAILY
     Route: 048
  7. NORVASC [Concomitant]
  8. FOLIC ACID [Concomitant]
  9. PEPTO-BISMOL [Concomitant]
  10. MULTI-VITAMINS [Concomitant]
  11. MAGNESIUM [Concomitant]
  12. CALCIUM [Concomitant]

REACTIONS (7)
  - NASOPHARYNGITIS [None]
  - ABDOMINAL DISCOMFORT [None]
  - LIPASE INCREASED [None]
  - ELECTROCARDIOGRAM QT PROLONGED [None]
  - HYPOMAGNESAEMIA [None]
  - URINARY TRACT INFECTION [None]
  - PYREXIA [None]
